FAERS Safety Report 8319226-X (Version None)
Quarter: 2012Q2

REPORT INFORMATION
  Report Type: 
  Country: None (occurrence: None)
  Receive Date: 20120427
  Receipt Date: 20120423
  Transmission Date: 20120825
  Serious: Yes (Hospitalization)
  Sender: FDA-Public Use
  Company Number: US-GILEAD-2012-0054125

PATIENT
  Sex: Male

DRUGS (2)
  1. LETAIRIS [Suspect]
     Indication: PRODUCT USED FOR UNKNOWN INDICATION
     Dosage: 10 UNK, UNK
     Route: 048
  2. LETAIRIS [Suspect]
     Dosage: 5 MG, UNK
     Route: 048
     Dates: start: 20101115

REACTIONS (1)
  - HAEMORRHAGIC STROKE [None]
